FAERS Safety Report 11080803 (Version 1)
Quarter: 2015Q2

REPORT INFORMATION
  Report Type: Spontaneous
  Country: IT (occurrence: IT)
  Receive Date: 20150501
  Receipt Date: 20150501
  Transmission Date: 20150821
  Serious: Yes (Other)
  Sender: FDA-Public Use
  Company Number: IT-ACCORD-030315

PATIENT
  Age: 66 Year
  Sex: Female

DRUGS (1)
  1. QUETIAPINE [Suspect]
     Active Substance: QUETIAPINE
     Indication: AFFECTIVE DISORDER
     Dosage: DAILY DOSE WAS INCREASED AND FOLLOWED BY DISCONTINUATUION FINALLY.
     Dates: start: 20131031, end: 20140228

REACTIONS (9)
  - Product substitution issue [Unknown]
  - Circadian rhythm sleep disorder [Unknown]
  - Blood pressure abnormal [Unknown]
  - Neurodegenerative disorder [Unknown]
  - Hearing impaired [Unknown]
  - Performance status decreased [Unknown]
  - Nervousness [Unknown]
  - Nightmare [Unknown]
  - Thinking abnormal [Unknown]

NARRATIVE: CASE EVENT DATE: 20140131
